FAERS Safety Report 10768138 (Version 1)
Quarter: 2015Q1

REPORT INFORMATION
  Report Type: Spontaneous
  Country: US (occurrence: US)
  Receive Date: 20150206
  Receipt Date: 20150206
  Transmission Date: 20150721
  Serious: Yes (Other)
  Sender: FDA-Public Use
  Company Number: PHHY2015US011259

PATIENT
  Age: 44 Year
  Sex: Female

DRUGS (2)
  1. NALTREXONE [Suspect]
     Active Substance: NALTREXONE
     Indication: CONSTIPATION
     Dosage: 50 MG, UNK
     Route: 065
  2. MORPHINE [Interacting]
     Active Substance: MORPHINE
     Indication: FIBROMYALGIA
     Dosage: 30 MG, QID
     Route: 048

REACTIONS (10)
  - Myalgia [Recovered/Resolved]
  - Respiratory alkalosis [Recovered/Resolved]
  - Drug withdrawal syndrome [Recovered/Resolved]
  - Abdominal pain [Recovered/Resolved]
  - Vomiting [Recovered/Resolved]
  - Diarrhoea [Recovered/Resolved]
  - Hyperhidrosis [Recovered/Resolved]
  - Nausea [Recovered/Resolved]
  - Fatigue [Recovered/Resolved]
  - Metabolic alkalosis [Recovered/Resolved]
